FAERS Safety Report 6184121-1 (Version None)
Quarter: 2009Q2

REPORT INFORMATION
  Report Type: 
  Country: None (occurrence: None)
  Receive Date: 20090508
  Receipt Date: 20090429
  Transmission Date: 20091009
  Serious: Yes (Other)
  Sender: FDA-Public Use
  Company Number: PHEH2008US04277

PATIENT
  Sex: Female

DRUGS (1)
  1. ZOMETA [Suspect]
     Indication: BREAST CANCER

REACTIONS (12)
  - ANAEMIA [None]
  - ANHEDONIA [None]
  - ANXIETY [None]
  - ARTIFICIAL MENOPAUSE [None]
  - BONE DEBRIDEMENT [None]
  - BONE PAIN [None]
  - DEPRESSION [None]
  - INJURY [None]
  - INSOMNIA [None]
  - OSTEONECROSIS [None]
  - PAIN [None]
  - WOUND INFECTION [None]
